FAERS Safety Report 5416025-3 (Version None)
Quarter: 2007Q3

REPORT INFORMATION
  Report Type: 
  Country: None (occurrence: None)
  Receive Date: 20070718
  Receipt Date: 20070402
  Transmission Date: 20080115
  Serious: Yes (Hospitalization, Other)
  Sender: FDA-Public Use
  Company Number: 2007006429

PATIENT
  Age: 70 Year
  Sex: Male
  Weight: 88.5 kg

DRUGS (3)
  1. CELEBREX [Suspect]
     Indication: BACK PAIN
     Dosage: 200 MG (200 MG,1 IN 1 D)
     Dates: start: 20040401
  2. CELEBREX [Suspect]
     Indication: PAIN
     Dosage: 200 MG (200 MG,1 IN 1 D)
     Dates: start: 20040401
  3. BEXTRA [Suspect]
     Indication: BACK PAIN
     Dosage: (20 MG,FREQUENCY 1 OR 2 PER DAY)
     Dates: start: 20040401

REACTIONS (4)
  - ANXIETY [None]
  - CEREBROVASCULAR DISORDER [None]
  - DEPRESSION [None]
  - MYOCARDIAL INFARCTION [None]
